FAERS Safety Report 12268961 (Version 4)
Quarter: 2016Q4

REPORT INFORMATION
  Report Type: Spontaneous
  Country: GB (occurrence: GB)
  Receive Date: 20160414
  Receipt Date: 20161212
  Transmission Date: 20170207
  Serious: Yes (Hospitalization, Other)
  Sender: FDA-Public Use
  Company Number: GB-PFIZER INC-2016204008

PATIENT
  Age: 21 Year
  Sex: Female
  Weight: 62 kg

DRUGS (4)
  1. DEPO-PROVERA [Suspect]
     Active Substance: MEDROXYPROGESTERONE ACETATE
     Dosage: 3RD COURSE
     Dates: start: 20030303, end: 20121102
  2. DEPO-PROVERA [Suspect]
     Active Substance: MEDROXYPROGESTERONE ACETATE
     Indication: CONTRACEPTION
     Dosage: 1ST COURSE
     Dates: start: 19971024, end: 19981016
  3. DEPO-PROVERA [Suspect]
     Active Substance: MEDROXYPROGESTERONE ACETATE
     Dosage: 2ND COURSE
     Dates: start: 19990618, end: 20010316
  4. DEPO-PROVERA [Suspect]
     Active Substance: MEDROXYPROGESTERONE ACETATE
     Dosage: 150 MG, EVERY 3 MONTHS
     Route: 030
     Dates: start: 20130412, end: 20130627

REACTIONS (17)
  - Intervertebral disc protrusion [Not Recovered/Not Resolved]
  - Patellofemoral pain syndrome [Unknown]
  - Cartilage injury [Not Recovered/Not Resolved]
  - Amenorrhoea [Unknown]
  - Carpal tunnel syndrome [Not Recovered/Not Resolved]
  - Back pain [Not Recovered/Not Resolved]
  - Vitamin D decreased [Unknown]
  - Fluid retention [Unknown]
  - Bone disorder [Not Recovered/Not Resolved]
  - Arthralgia [Not Recovered/Not Resolved]
  - Tenosynovitis [Unknown]
  - Osteoarthritis [Unknown]
  - Abdominal pain [Unknown]
  - Fibrocystic breast disease [Unknown]
  - Depression [Unknown]
  - Osteopenia [Unknown]
  - Vaginal discharge [Unknown]

NARRATIVE: CASE EVENT DATE: 1997
